FAERS Safety Report 12389635 (Version 1)
Quarter: 2016Q2

REPORT INFORMATION
  Report Type: Spontaneous
  Country: DE (occurrence: DE)
  Receive Date: 20160520
  Receipt Date: 20160520
  Transmission Date: 20160815
  Serious: Yes (Hospitalization)
  Sender: FDA-Public Use
  Company Number: DE-009507513-1605DEU006296

PATIENT
  Age: 23 Year
  Sex: Female
  Weight: 56 kg

DRUGS (1)
  1. NUVARING [Suspect]
     Active Substance: ETHINYL ESTRADIOL\ETONOGESTREL
     Indication: CONTRACEPTION

REACTIONS (6)
  - Haemoptysis [Unknown]
  - Respiratory distress [Unknown]
  - Dyspnoea [Not Recovered/Not Resolved]
  - Pleurisy [Unknown]
  - Pneumonitis [Unknown]
  - Pulmonary embolism [Unknown]
